FAERS Safety Report 14536627 (Version 2)
Quarter: 2018Q2

REPORT INFORMATION
  Report Type: Spontaneous
  Country: US (occurrence: US)
  Receive Date: 20180215
  Receipt Date: 20180412
  Transmission Date: 20180711
  Serious: Yes (Other)
  Sender: FDA-Public Use
  Company Number: US-BAYER-2018-028823

PATIENT
  Age: 27 Year
  Sex: Female
  Weight: 88.9 kg

DRUGS (2)
  1. MIRENA [Suspect]
     Active Substance: LEVONORGESTREL
     Indication: CONTRACEPTION
  2. MIRENA [Suspect]
     Active Substance: LEVONORGESTREL
     Indication: CONTRACEPTION
     Dosage: 20 MCG/24HR, CONT
     Route: 015
     Dates: start: 20171229, end: 20180302

REACTIONS (8)
  - Cervical dysplasia [None]
  - Dizziness [None]
  - Breast discharge [None]
  - Gastrooesophageal reflux disease [None]
  - Vaginal haemorrhage [None]
  - Bacterial vaginosis [None]
  - Pelvic pain [None]
  - Device dislocation [None]

NARRATIVE: CASE EVENT DATE: 20180131
